FAERS Safety Report 14839477 (Version 1)
Quarter: 2018Q2

REPORT INFORMATION
  Report Type: Spontaneous
  Country: PT (occurrence: PT)
  Receive Date: 20180502
  Receipt Date: 20180502
  Transmission Date: 20180711
  Serious: Yes (Disabling, Other)
  Sender: FDA-Public Use
  Company Number: PT-BIOGEN-2018BI00565993

PATIENT
  Age: 38 Year
  Sex: Female
  Weight: 68 kg

DRUGS (3)
  1. PLEGRIDY [Suspect]
     Active Substance: PEGINTERFERON BETA-1A
     Route: 058
     Dates: end: 201709
  2. IBUPROFEN. [Concomitant]
     Active Substance: IBUPROFEN
     Indication: PRODUCT USED FOR UNKNOWN INDICATION
     Route: 065
     Dates: start: 20170306
  3. PLEGRIDY [Suspect]
     Active Substance: PEGINTERFERON BETA-1A
     Indication: RELAPSING-REMITTING MULTIPLE SCLEROSIS
     Route: 058
     Dates: start: 20170804

REACTIONS (5)
  - Fatigue [Recovered/Resolved]
  - Injection site oedema [Recovered/Resolved]
  - Chest discomfort [Recovered/Resolved]
  - Affect lability [Recovered/Resolved]
  - Injection site erythema [Recovered/Resolved]

NARRATIVE: CASE EVENT DATE: 201708
